FAERS Safety Report 23798697 (Version 1)
Quarter: 2024Q2

REPORT INFORMATION
  Report Type: Spontaneous
  Country: US (occurrence: None)
  Receive Date: 20240426
  Receipt Date: 20240426
  Transmission Date: 20240716
  Serious: No
  Sender: FDA-Public Use
  Company Number: None

PATIENT
  Age: 54 Year
  Sex: Male

DRUGS (3)
  1. ABILIFY MAINTENA [Suspect]
     Active Substance: ARIPIPRAZOLE
     Indication: Bipolar disorder
     Dosage: 400 MG EVERY MONTH SUBCUTANEOUS
     Route: 058
     Dates: start: 20240201
  2. CABOTEGRAVIR [Concomitant]
     Active Substance: CABOTEGRAVIR
     Dates: start: 20231011
  3. BENZTROPINE [Concomitant]
     Active Substance: BENZTROPINE
     Dates: start: 20240404

REACTIONS (1)
  - Dysarthria [None]

NARRATIVE: CASE EVENT DATE: 20240404
